FAERS Safety Report 16747089 (Version 1)
Quarter: 2019Q3

REPORT INFORMATION
  Report Type: Spontaneous
  Country: US (occurrence: US)
  Receive Date: 20190827
  Receipt Date: 20190827
  Transmission Date: 20191005
  Serious: No
  Sender: FDA-Public Use
  Company Number: US-SA-2019SA237354

PATIENT
  Age: 83 Year
  Sex: Female

DRUGS (1)
  1. LANTUS SOLOSTAR [Suspect]
     Active Substance: INSULIN GLARGINE
     Dosage: 24 U
     Route: 065

REACTIONS (4)
  - Device issue [Unknown]
  - Injury associated with device [Unknown]
  - Visual impairment [Unknown]
  - Wrong technique in device usage process [Unknown]
